FAERS Safety Report 4362765-7 (Version None)
Quarter: 2004Q2

REPORT INFORMATION
  Report Type: 
  Country: None (occurrence: None)
  Receive Date: 20040518
  Receipt Date: 20040503
  Transmission Date: 20050107
  Serious: No
  Sender: FDA-Public Use
  Company Number: 04P-163-0259780-00

PATIENT
  Age: 57 Year
  Sex: Male

DRUGS (5)
  1. NORVIR [Suspect]
     Indication: HIV INFECTION
     Dosage: 200 MG, 2 IN 1 D
  2. INDINAVIR (INDINAVIR) [Suspect]
     Indication: HIV INFECTION
     Dosage: 800 MG, 2 IN 1 D
  3. PACLITAXEL [Suspect]
     Indication: KAPOSI'S SARCOMA
     Dosage: 100 MG/M SQUARED
  4. LAMIVUDINE (LAMIVUDINE) [Concomitant]
  5. STAVUDINE (STAVUDINE) [Concomitant]

REACTIONS (10)
  - ALOPECIA TOTALIS [None]
  - BLOOD CULTURE POSITIVE [None]
  - DRUG INTERACTION [None]
  - DRUG TOXICITY [None]
  - KAPOSI'S SARCOMA [None]
  - PLATELET COUNT DECREASED [None]
  - PYREXIA [None]
  - STAPHYLOCOCCAL INFECTION [None]
  - TREATMENT NONCOMPLIANCE [None]
  - WHITE BLOOD CELL COUNT DECREASED [None]
